FAERS Safety Report 9456549 (Version 3)
Quarter: 2013Q4

REPORT INFORMATION
  Report Type: Spontaneous
  Country: US (occurrence: US)
  Receive Date: 20130813
  Receipt Date: 20131119
  Transmission Date: 20140711
  Serious: Yes (Hospitalization, Disabling)
  Sender: FDA-Public Use
  Company Number: US-CELGENEUS-163-POMAL-13080847

PATIENT
  Age: 68 Year
  Sex: Male
  Weight: 138.47 kg

DRUGS (18)
  1. POMALYST [Suspect]
     Indication: PLASMA CELL MYELOMA
     Dosage: 4 MILLIGRAM
     Route: 048
     Dates: start: 20130711, end: 20130922
  2. AMIODARONE [Suspect]
     Indication: HYPERTENSION
     Dosage: 400 MILLIGRAM
     Route: 065
  3. AMIODARONE [Suspect]
     Dosage: 200 MILLIGRAM
     Route: 065
  4. DULERA [Concomitant]
     Indication: CHRONIC OBSTRUCTIVE PULMONARY DISEASE
     Route: 065
  5. SPIRIVA [Concomitant]
     Indication: CHRONIC OBSTRUCTIVE PULMONARY DISEASE
     Route: 065
  6. BUDESONIDE [Concomitant]
     Indication: CHRONIC OBSTRUCTIVE PULMONARY DISEASE
     Route: 065
  7. ALBUTEROL [Concomitant]
     Indication: CHRONIC OBSTRUCTIVE PULMONARY DISEASE
     Route: 065
  8. BROVANA [Concomitant]
     Indication: CHRONIC OBSTRUCTIVE PULMONARY DISEASE
     Route: 065
  9. LIPITOR [Concomitant]
     Indication: HYPERLIPIDAEMIA
     Route: 065
  10. LOVAZA [Concomitant]
     Indication: HYPERLIPIDAEMIA
     Route: 065
  11. COUMADIN [Concomitant]
     Indication: ATRIAL FIBRILLATION
     Route: 065
  12. LASIX [Concomitant]
     Indication: ATRIAL FIBRILLATION
     Route: 065
  13. LASIX [Concomitant]
     Indication: HYPERTENSION
  14. TOPROL XL [Concomitant]
     Indication: HYPERTENSION
     Route: 065
  15. CITALOPRAM [Concomitant]
     Indication: DEPRESSION
     Route: 065
  16. CITALOPRAM [Concomitant]
     Indication: ANXIETY
  17. IV HYDRATION [Concomitant]
     Indication: RENAL FAILURE
     Route: 041
     Dates: start: 2013
  18. IV HYDRATION [Concomitant]
     Indication: ANXIETY

REACTIONS (3)
  - Lung infiltration [Not Recovered/Not Resolved]
  - Hypercalcaemia [Recovered/Resolved]
  - Renal failure [Recovered/Resolved]
